FAERS Safety Report 5504899-7 (Version None)
Quarter: 2007Q4

REPORT INFORMATION
  Report Type: 
  Country: None (occurrence: None)
  Receive Date: 20071102
  Receipt Date: 20071022
  Transmission Date: 20080405
  Serious: Yes (Hospitalization)
  Sender: FDA-Public Use
  Company Number: GB-WYE-H00878507

PATIENT
  Age: 36 Year
  Sex: Female

DRUGS (1)
  1. VENLAFAXIINE HCL [Suspect]
     Dosage: 3 G (OVERDOSE AMOUNT)
     Route: 048

REACTIONS (3)
  - DRUG TOXICITY [None]
  - OVERDOSE [None]
  - SUPRAVENTRICULAR TACHYCARDIA [None]
